FAERS Safety Report 4715217-6 (Version None)
Quarter: 2005Q3

REPORT INFORMATION
  Report Type: 
  Country: None (occurrence: None)
  Receive Date: 20050715
  Receipt Date: 20050421
  Transmission Date: 20060218
  Serious: Yes (Hospitalization)
  Sender: FDA-Public Use
  Company Number: US-ROCHE-402590

PATIENT
  Age: 58 Year
  Sex: Male
  Weight: 86.6 kg

DRUGS (20)
  1. RIBAVIRIN [Suspect]
     Route: 048
     Dates: start: 20050311
  2. RIBAVIRIN [Suspect]
     Route: 048
     Dates: end: 20050709
  3. PEG-INTERFERON ALFA 2A (RO 25-8310) [Suspect]
     Route: 058
     Dates: start: 20050311, end: 20050708
  4. ALLOPURINOL [Concomitant]
     Dates: start: 20050321
  5. AMITRIPTYLINE HCL [Concomitant]
  6. ASPIRIN [Concomitant]
  7. ATENOLOL [Concomitant]
  8. BUPROPION HCL [Concomitant]
  9. CLONIDINE [Concomitant]
  10. DOCUSATE NA [Concomitant]
     Dates: start: 20050408
  11. EPOETIN ALFA [Concomitant]
     Dates: start: 20050401
  12. FOSINOPRIL SODIUM [Concomitant]
  13. FUROSEMIDE [Concomitant]
  14. NPH INSULIN [Concomitant]
  15. REGULAR INSULIN [Concomitant]
  16. METOCLOPRAMIDE HCL [Concomitant]
     Dates: start: 20050408
  17. OMEPRAZOLE [Concomitant]
     Dates: start: 20050407
  18. PENTOXIFYLLINE [Concomitant]
  19. PSYLLIUM [Concomitant]
     Dates: start: 20050408
  20. GEMFIBROZIL [Concomitant]
     Dates: start: 20050601

REACTIONS (8)
  - BLOOD GLUCOSE INCREASED [None]
  - DIZZINESS [None]
  - HAEMATOCRIT DECREASED [None]
  - HAEMOGLOBIN DECREASED [None]
  - ORTHOSTATIC HYPOTENSION [None]
  - PANCREATITIS ACUTE [None]
  - VISION BLURRED [None]
  - VISUAL BRIGHTNESS [None]
